FAERS Safety Report 11768361 (Version 7)
Quarter: 2018Q4

REPORT INFORMATION
  Report Type: Report from Study
  Country: JP (occurrence: JP)
  Receive Date: 20151123
  Receipt Date: 20181012
  Transmission Date: 20190204
  Serious: Yes (Death, Life-Threatening, Other)
  Sender: FDA-Public Use
  Company Number: JP-EISAI MEDICAL RESEARCH-EC-2015-012243

PATIENT
  Age: 65 Year
  Sex: Male
  Weight: 47 kg

DRUGS (13)
  1. CARDENALIN [Concomitant]
     Active Substance: DOXAZOSIN MESYLATE
  2. ROPION [Concomitant]
     Active Substance: FLURBIPROFEN AXETIL
  3. LENVIMA [Suspect]
     Active Substance: LENVATINIB
     Indication: PAPILLARY THYROID CANCER
     Route: 048
     Dates: start: 20151031, end: 20151105
  4. THYRADIN [Concomitant]
     Active Substance: LEVOTHYROXINE
  5. LENVIMA [Suspect]
     Active Substance: LENVATINIB
     Route: 048
     Dates: start: 20151130, end: 20151203
  6. TAKEPRON [Concomitant]
     Active Substance: LANSOPRAZOLE
  7. FENTANYL. [Concomitant]
     Active Substance: FENTANYL
  8. NOVAMIN (PROCHLORPERAZINE) [Concomitant]
     Active Substance: PROCHLORPERAZINE
  9. LENVIMA [Suspect]
     Active Substance: LENVATINIB
     Route: 048
     Dates: start: 20151110, end: 20151117
  10. LEVOTHYROXINE SODIUM. [Concomitant]
     Active Substance: LEVOTHYROXINE SODIUM
  11. ACECOL [Concomitant]
     Active Substance: TEMOCAPRIL HYDROCHLORIDE
  12. ATELEC [Concomitant]
     Active Substance: CILNIDIPINE
  13. LULLAN [Concomitant]
     Active Substance: PEROSPIRONE HYDROCHLORIDE

REACTIONS (3)
  - Lymphocyte count decreased [Unknown]
  - Pneumothorax [Recovering/Resolving]
  - Malignant neoplasm progression [Fatal]

NARRATIVE: CASE EVENT DATE: 20151117
